FAERS Safety Report 6085943-8 (Version None)
Quarter: 2009Q1

REPORT INFORMATION
  Report Type: 
  Country: None (occurrence: None)
  Receive Date: 20090220
  Receipt Date: 20090217
  Transmission Date: 20090719
  Serious: Yes (Other)
  Sender: FDA-Public Use
  Company Number: DE-WYE-G03144409

PATIENT
  Sex: Male
  Weight: 3.5 kg

DRUGS (6)
  1. TREVILOR RETARD [Suspect]
     Indication: DEPRESSION
     Route: 064
     Dates: start: 20060401
  2. TREVILOR RETARD [Suspect]
     Indication: ANXIETY
     Route: 064
  3. NICOTINE [Concomitant]
     Dosage: UNKNOWN
     Route: 064
  4. ETHANOL [Concomitant]
     Dosage: UNKNOWN
     Route: 064
  5. FORADIL [Concomitant]
     Indication: BRONCHITIS
     Dosage: 1-2 CAPSULES PER DAY
     Route: 064
     Dates: start: 20070101
  6. LEVOTHYROXINE SODIUM [Concomitant]
     Dosage: UNKNOWN
     Route: 064

REACTIONS (1)
  - HEPATIC CYST [None]
